FAERS Safety Report 6389428-0 (Version None)
Quarter: 2009Q4

REPORT INFORMATION
  Report Type: 
  Country: None (occurrence: None)
  Receive Date: 20091006
  Receipt Date: 20091001
  Transmission Date: 20100525
  Serious: Yes (Hospitalization)
  Sender: FDA-Public Use
  Company Number: US-SP-2009-04156

PATIENT
  Age: 77 Year
  Sex: Female

DRUGS (2)
  1. THERACYS [Suspect]
     Indication: BLADDER CANCER
     Route: 043
  2. THERACYS [Suspect]
     Route: 043

REACTIONS (3)
  - BLADDER IRRITATION [None]
  - CHILLS [None]
  - PYREXIA [None]
